FAERS Safety Report 16933314 (Version 1)
Quarter: 2019Q4

REPORT INFORMATION
  Report Type: Spontaneous
  Country: US (occurrence: US)
  Receive Date: 20191018
  Receipt Date: 20191018
  Transmission Date: 20200122
  Serious: Yes (Death, Other)
  Sender: FDA-Public Use
  Company Number: US-APOTEX-2019AP023495

PATIENT
  Age: 28 Year
  Sex: Male

DRUGS (2)
  1. DEPAKOTE [Suspect]
     Active Substance: DIVALPROEX SODIUM
     Indication: PRODUCT USED FOR UNKNOWN INDICATION
     Dosage: UNK
     Route: 065
  2. BUPROPION. [Suspect]
     Active Substance: BUPROPION
     Indication: SUICIDE ATTEMPT
     Dosage: 30 DF, SINGLE
     Route: 065

REACTIONS (10)
  - Electrocardiogram QRS complex prolonged [Fatal]
  - Pulseless electrical activity [Fatal]
  - Hypotension [Fatal]
  - Toxicity to various agents [Fatal]
  - Overdose [Fatal]
  - Lethargy [Fatal]
  - Suicide attempt [Fatal]
  - Status epilepticus [Fatal]
  - Electrocardiogram QT prolonged [Fatal]
  - Bradycardia [Fatal]
